FAERS Safety Report 9231823 (Version 1)
Quarter: 2013Q2

REPORT INFORMATION
  Report Type: Spontaneous
  Country: US (occurrence: US)
  Receive Date: 20130415
  Receipt Date: 20130415
  Transmission Date: 20140414
  Serious: No
  Sender: FDA-Public Use
  Company Number: US-PFIZER INC-2013117754

PATIENT
  Age: 67 Year
  Sex: Male
  Weight: 98.41 kg

DRUGS (17)
  1. EFFEXOR XR [Suspect]
     Indication: DEPRESSION
     Dosage: 225 MG (150MG AND 75MG), 1X/DAY
     Route: 048
  2. TESTIM [Concomitant]
     Indication: BLOOD TESTOSTERONE DECREASED
     Dosage: UNK
  3. ZOFRAN [Concomitant]
     Dosage: UNK
  4. ALBUTEROL [Concomitant]
     Indication: ASTHMA
     Dosage: UNK
  5. AZELASTINE [Concomitant]
     Indication: SINUS DISORDER
     Dosage: UNK, 1X/DAY
  6. SYNTHROID [Concomitant]
     Dosage: 137 UG, UNK
  7. LOPID [Concomitant]
     Dosage: 600 MG, UNK
  8. LISINOPRIL [Concomitant]
     Dosage: 10 MG, UNK
  9. PRAVASTATIN [Concomitant]
     Dosage: 40 MG, 1X/DAY
  10. GLIPIZIDE [Concomitant]
     Indication: DIABETES MELLITUS
     Dosage: UNK
  11. METFORMIN [Concomitant]
     Indication: DIABETES MELLITUS
     Dosage: UNK
  12. LITHIUM [Concomitant]
     Dosage: 900 MG, 1X/DAY
  13. VALIUM [Concomitant]
     Dosage: 10 MG, AS NEEDED
  14. XARELTO [Concomitant]
     Indication: CARDIAC DISORDER
     Dosage: 20 MG, UNK
  15. FLECAINIDE [Concomitant]
     Indication: ATRIAL FIBRILLATION
     Dosage: 100 MG, 2X/DAY
  16. METOPROLOL [Concomitant]
     Dosage: 50 MG, 2X/DAY
  17. NEXIUM [Concomitant]
     Dosage: 40 MG, 1X/DAY

REACTIONS (1)
  - Drug effect decreased [Unknown]
